FAERS Safety Report 8870503 (Version 2)
Quarter: 2013Q2

REPORT INFORMATION
  Report Type: Spontaneous
  Country: US (occurrence: None)
  Receive Date: 20120426
  Receipt Date: 20121031
  Transmission Date: 20140414
  Serious: No
  Sender: FDA-Public Use
  Company Number: PHEH2012US002836

PATIENT
  Age: 50 Year
  Sex: Female
  Weight: 60.3 kg

DRUGS (3)
  1. GILENYA [Suspect]
     Indication: RELAPSING-REMITTING MULTIPLE SCLEROSIS
     Route: 048
     Dates: start: 20111130
  2. LEXAPRO (ESCITALOPRAM OXALATE) [Concomitant]
  3. MULTIVATIMINS (VITAMINS NOS) [Concomitant]

REACTIONS (7)
  - Micturition urgency [None]
  - Hyperhidrosis [None]
  - Hot flush [None]
  - Constipation [None]
  - Muscle spasms [None]
  - Nasopharyngitis [None]
  - Drug ineffective [None]
